FAERS Safety Report 12185107 (Version 2)
Quarter: 2016Q1

REPORT INFORMATION
  Report Type: Report from Study
  Country: CR (occurrence: CR)
  Receive Date: 20160316
  Receipt Date: 20160331
  Transmission Date: 20160526
  Serious: Yes (Other)
  Sender: FDA-Public Use
  Company Number: PHHY2016CR033741

PATIENT
  Sex: Male
  Weight: 90.7 kg

DRUGS (1)
  1. EXFORGE HCT [Suspect]
     Active Substance: AMLODIPINE BESYLATE\HYDROCHLOROTHIAZIDE\VALSARTAN
     Indication: HYPERTENSION
     Dosage: (AMLODIPINE 10 MG/HYDROCHLOROTHIAZIDE 25 MG/VALSARTAN 320 MG), QD
     Route: 048

REACTIONS (2)
  - Deafness [Unknown]
  - Psoriasis [Not Recovered/Not Resolved]
